FAERS Safety Report 8926533 (Version 2)
Quarter: 2012Q4

REPORT INFORMATION
  Report Type: Report from Study
  Country: US (occurrence: US)
  Receive Date: 20121127
  Receipt Date: 20121217
  Transmission Date: 20130627
  Serious: Yes (Other)
  Sender: FDA-Public Use
  Company Number: US-ABBOTT-12P-163-1010241-00

PATIENT
  Age: 30 Year
  Sex: Female

DRUGS (4)
  1. HUMIRA [Suspect]
     Indication: PSORIASIS
     Dates: start: 201003, end: 201012
  2. HUMIRA [Suspect]
     Dates: start: 201209
  3. ADDERALL XR [Concomitant]
     Indication: ATTENTION DEFICIT/HYPERACTIVITY DISORDER
     Dosage: 10 mg daily
  4. MTX [Concomitant]
     Dosage: trial in 2008

REACTIONS (4)
  - Stent placement [Recovering/Resolving]
  - Pain [Recovered/Resolved]
  - Sinusitis [Unknown]
  - Tonsillolith [Unknown]
